FAERS Safety Report 9313634 (Version 3)
Quarter: 2013Q3

REPORT INFORMATION
  Report Type: Spontaneous
  Country: US (occurrence: US)
  Receive Date: 20130528
  Receipt Date: 20130709
  Transmission Date: 20140515
  Serious: Yes (Other)
  Sender: FDA-Public Use
  Company Number: US-ALLERGAN-1307447US

PATIENT
  Age: 65 Year
  Sex: Male

DRUGS (3)
  1. RESTASIS? [Suspect]
     Indication: DRY EYE
     Dosage: 2 GTT, BID
     Route: 047
     Dates: start: 20120824
  2. RESTASIS? [Suspect]
     Dosage: UNK UNK, QHS
     Route: 047
  3. RESTASIS? [Suspect]
     Dosage: 2 GTT, BID
     Route: 047
     Dates: start: 2012

REACTIONS (5)
  - Vitreous detachment [Recovered/Resolved]
  - Madarosis [Recovered/Resolved]
  - Instillation site pain [Not Recovered/Not Resolved]
  - Ocular hyperaemia [Recovered/Resolved]
  - Eye irritation [Recovered/Resolved]
